FAERS Safety Report 15377888 (Version 2)
Quarter: 2018Q3

REPORT INFORMATION
  Report Type: Spontaneous
  Country: US (occurrence: US)
  Receive Date: 20180913
  Receipt Date: 20180922
  Transmission Date: 20181010
  Serious: No
  Sender: FDA-Public Use
  Company Number: US-JNJFOC-20180900274

PATIENT
  Sex: Male

DRUGS (1)
  1. NIZORAL A?D [Suspect]
     Active Substance: KETOCONAZOLE
     Indication: DRUG THERAPY
     Route: 065

REACTIONS (3)
  - Pain [Not Recovered/Not Resolved]
  - Sebaceous gland disorder [Unknown]
  - Nail disorder [Unknown]
